FAERS Safety Report 9341414 (Version 1)
Quarter: 2013Q2

REPORT INFORMATION
  Report Type: Spontaneous
  Country: CN (occurrence: CN)
  Receive Date: 20130611
  Receipt Date: 20130611
  Transmission Date: 20140414
  Serious: Yes (Other)
  Sender: FDA-Public Use
  Company Number: CN-JNJFOC-20130602723

PATIENT
  Age: 46 Year
  Sex: Female
  Weight: 63 kg

DRUGS (2)
  1. TYLENOL COLD [Suspect]
     Indication: ABDOMINAL PAIN
     Route: 048
     Dates: start: 20120728, end: 20120728
  2. TYLENOL COLD [Suspect]
     Indication: PYREXIA
     Route: 048
     Dates: start: 20120728, end: 20120728

REACTIONS (2)
  - Pruritus [Recovered/Resolved]
  - Rash maculo-papular [Recovered/Resolved]
